FAERS Safety Report 17245661 (Version 2)
Quarter: 2020Q1

REPORT INFORMATION
  Report Type: Spontaneous
  Country: US (occurrence: US)
  Receive Date: 20200108
  Receipt Date: 20200128
  Transmission Date: 20200409
  Serious: No
  Sender: FDA-Public Use
  Company Number: US-ASTRAZENECA-2019SF81677

PATIENT
  Sex: Female

DRUGS (1)
  1. BYDUREON [Suspect]
     Active Substance: EXENATIDE
     Dosage: 2.0MG UNKNOWN
     Route: 065

REACTIONS (5)
  - Device issue [Unknown]
  - Prescription drug used without a prescription [Unknown]
  - Nephrolithiasis [Not Recovered/Not Resolved]
  - Wrong technique in product usage process [Unknown]
  - Device malfunction [Unknown]
